FAERS Safety Report 9127775 (Version 1)
Quarter: 2013Q1

REPORT INFORMATION
  Report Type: Report from Study
  Country: CA (occurrence: CA)
  Receive Date: 20130122
  Receipt Date: 20130122
  Transmission Date: 20140127
  Serious: Yes (Hospitalization, Other)
  Sender: FDA-Public Use
  Company Number: CA-UCBSA-075532

PATIENT
  Age: 51 Year
  Sex: Female

DRUGS (10)
  1. CIMZIA [Suspect]
     Indication: RHEUMATOID ARTHRITIS
     Route: 058
     Dates: start: 20121115, end: 20121213
  2. METHOTREXATE [Concomitant]
     Indication: RHEUMATOID ARTHRITIS
     Route: 058
  3. PREDNISONE [Concomitant]
     Indication: RHEUMATOID ARTHRITIS
     Route: 048
  4. RAMIPRIL [Concomitant]
     Indication: HYPERTENSION
     Route: 048
  5. REPAGLINIDE [Concomitant]
     Indication: DIABETES MELLITUS
     Route: 048
  6. RABEPRAZOLE [Concomitant]
     Indication: GASTROOESOPHAGEAL REFLUX DISEASE
     Route: 048
  7. DESIPRAMINE [Concomitant]
     Indication: PAIN
     Dosage: BED TIME
     Route: 048
  8. DESIPRAMINE [Concomitant]
     Indication: SLEEP DISORDER
     Dosage: BED TIME
     Route: 048
  9. RISEDRONATE [Concomitant]
     Indication: OSTEOPOROSIS
     Route: 048
  10. LUMIGAN [Concomitant]
     Indication: GLAUCOMA
     Route: 047
     Dates: start: 201209, end: 20130107

REACTIONS (2)
  - Hypersensitivity [Recovered/Resolved]
  - Respiratory tract congestion [Recovered/Resolved]
